FAERS Safety Report 7771921-7 (Version None)
Quarter: 2011Q3

REPORT INFORMATION
  Report Type: 
  Country: None (occurrence: None)
  Receive Date: 20110922
  Receipt Date: 20110412
  Transmission Date: 20111222
  Serious: No
  Sender: FDA-Public Use
  Company Number: US-ASTRAZENECA-2010SE06578

PATIENT
  Age: 52 Year
  Sex: Female
  Weight: 95.3 kg

DRUGS (11)
  1. SEROQUEL [Suspect]
     Route: 048
     Dates: end: 20100301
  2. SEROQUEL [Suspect]
     Indication: PRODUCT USED FOR UNKNOWN INDICATION
     Route: 048
  3. SEROQUEL [Suspect]
     Route: 048
  4. PAXIL [Concomitant]
  5. SEROQUEL [Suspect]
     Route: 048
  6. SEROQUEL [Suspect]
     Route: 048
  7. SEROQUEL [Suspect]
     Route: 048
  8. VITAMIN B12 SHOTS [Concomitant]
  9. SEROQUEL [Suspect]
     Indication: BIPOLAR I DISORDER
     Route: 048
  10. SEROQUEL [Suspect]
     Route: 048
     Dates: end: 20100301
  11. ESTRADIOL [Concomitant]
     Indication: HYPERHIDROSIS

REACTIONS (10)
  - MALAISE [None]
  - INSOMNIA [None]
  - NASOPHARYNGITIS [None]
  - DRUG INEFFECTIVE [None]
  - PARANOIA [None]
  - NERVOUSNESS [None]
  - HYPERHIDROSIS [None]
  - DRUG DOSE OMISSION [None]
  - CHILLS [None]
  - VOMITING [None]
